FAERS Safety Report 4693393-1 (Version None)
Quarter: 2005Q2

REPORT INFORMATION
  Report Type: 
  Country: None (occurrence: None)
  Receive Date: 20050617
  Receipt Date: 20050607
  Transmission Date: 20051028
  Serious: Yes (Hospitalization)
  Sender: FDA-Public Use
  Company Number: US-JNJFOC-20050602343

PATIENT
  Age: 23 Year
  Sex: Female
  Weight: 62.6 kg

DRUGS (6)
  1. TOPAMAX [Suspect]
     Route: 049
  2. TOPAMAX [Suspect]
     Indication: MIGRAINE PROPHYLAXIS
     Route: 049
  3. DILAUDID [Concomitant]
     Indication: HEADACHE
  4. SOMA [Concomitant]
  5. VALIUM [Concomitant]
  6. SEROQUEL [Concomitant]

REACTIONS (10)
  - AGGRESSION [None]
  - BALANCE DISORDER [None]
  - BLOOD CHLORIDE INCREASED [None]
  - DYSARTHRIA [None]
  - GAIT DISTURBANCE [None]
  - HEADACHE [None]
  - LOSS OF CONSCIOUSNESS [None]
  - OVERDOSE [None]
  - SEDATION [None]
  - WEIGHT DECREASED [None]
